FAERS Safety Report 6978927-6 (Version None)
Quarter: 2010Q3

REPORT INFORMATION
  Report Type: 
  Country: None (occurrence: None)
  Receive Date: 20100913
  Receipt Date: 20100906
  Transmission Date: 20110219
  Serious: Yes (Other)
  Sender: FDA-Public Use
  Company Number: BR-SANOFI-AVENTIS-2010SA053899

PATIENT
  Sex: Male
  Weight: 82 kg

DRUGS (7)
  1. OPTIPEN [Suspect]
  2. INSULIN GLARGINE [Suspect]
     Indication: TYPE 2 DIABETES MELLITUS
     Dosage: 30-34 IU DAILY
     Route: 058
     Dates: start: 20000101
  3. DETRUSITOL [Concomitant]
     Route: 048
     Dates: start: 20090101
  4. CASODEX [Concomitant]
     Indication: PROSTATIC DISORDER
     Route: 048
     Dates: start: 20100301
  5. ALL OTHER THERAPEUTIC PRODUCTS [Concomitant]
     Route: 048
     Dates: start: 20090101
  6. ALL OTHER THERAPEUTIC PRODUCTS [Concomitant]
     Indication: GLAUCOMA
     Route: 031
     Dates: start: 20100801
  7. VITAMIN B COMPLEX CAP [Concomitant]
     Route: 048
     Dates: start: 20080101

REACTIONS (2)
  - HYPERGLYCAEMIA [None]
  - METASTASES TO LUNG [None]
